FAERS Safety Report 8605467 (Version 2)
Quarter: 2014Q1

REPORT INFORMATION
  Report Type: Spontaneous
  Country: FR (occurrence: FR)
  Receive Date: 20120608
  Receipt Date: 20140314
  Transmission Date: 20141002
  Serious: Yes (Life-Threatening, Hospitalization, Disabling)
  Sender: FDA-Public Use
  Company Number: FR-GLAXOSMITHKLINE-B0591005A

PATIENT
  Age: 22 Year
  Sex: Male

DRUGS (2)
  1. ARIXTRA [Suspect]
     Indication: THROMBOSIS PROPHYLAXIS
     Dosage: 2.5MG PER DAY
     Route: 058
     Dates: start: 20090721, end: 20090722
  2. LOVENOX [Suspect]
     Indication: THROMBOSIS PROPHYLAXIS
     Dosage: .4ML PER DAY
     Route: 058
     Dates: start: 20090718, end: 20090720

REACTIONS (9)
  - Subdural haematoma [Recovered/Resolved with Sequelae]
  - Cerebral haemorrhage [Recovered/Resolved with Sequelae]
  - Coma [Recovered/Resolved with Sequelae]
  - Headache [Unknown]
  - Mydriasis [Unknown]
  - Hemiparesis [Not Recovered/Not Resolved]
  - Gastrointestinal haemorrhage [Recovered/Resolved]
  - Hemiplegia [Recovered/Resolved with Sequelae]
  - Off label use [Unknown]
